FAERS Safety Report 8712312 (Version 4)
Quarter: 2012Q4

REPORT INFORMATION
  Report Type: 
  Country: US (occurrence: US)
  Receive Date: 20120808
  Receipt Date: 20121011
  Transmission Date: 20130627
  Serious: No
  Sender: FDA-Public Use
  Company Number: US-BIOGENIDEC-2012BI028389

PATIENT
  Age: 48 Year
  Sex: Female

DRUGS (3)
  1. TYSABRI [Suspect]
     Indication: MULTIPLE SCLEROSIS
     Route: 042
     Dates: start: 20120627
  2. AVONEX [Concomitant]
     Route: 030
  3. UNSPECIFIED PAIN MEDICATION [Concomitant]
     Indication: PAIN

REACTIONS (9)
  - Tinnitus [Not Recovered/Not Resolved]
  - Speech disorder [Not Recovered/Not Resolved]
  - Headache [Unknown]
  - Chest pain [Recovered/Resolved]
  - Dizziness [Not Recovered/Not Resolved]
  - Chills [Unknown]
  - Nausea [Unknown]
  - Fatigue [Unknown]
  - Hypersensitivity [Unknown]
